FAERS Safety Report 24791509 (Version 1)
Quarter: 2024Q4

REPORT INFORMATION
  Report Type: Report from Study
  Country: GB (occurrence: GB)
  Receive Date: 20241231
  Receipt Date: 20241231
  Transmission Date: 20250114
  Serious: Yes (Other)
  Sender: ABBVIE
  Company Number: GB-ABBVIE-6067096

PATIENT
  Sex: Female

DRUGS (1)
  1. SKYRIZI [Suspect]
     Active Substance: RISANKIZUMAB-RZAA
     Indication: Crohn^s disease
     Dosage: DOSE: 360MG/2.4ML?DOSE: 1.00 EA
     Route: 058

REACTIONS (4)
  - Syncope [Unknown]
  - Skin disorder [Unknown]
  - Device issue [Unknown]
  - Injection site discharge [Unknown]
